FAERS Safety Report 9270159 (Version 1)
Quarter: 2013Q2

REPORT INFORMATION
  Report Type: Spontaneous
  Country: IT (occurrence: IT)
  Receive Date: 20130503
  Receipt Date: 20130503
  Transmission Date: 20140414
  Serious: Yes (Other)
  Sender: FDA-Public Use
  Company Number: IT-JNJFOC-20130412187

PATIENT
  Age: 36 Year
  Sex: Female

DRUGS (5)
  1. INVEGA [Suspect]
     Indication: PRODUCT USED FOR UNKNOWN INDICATION
     Route: 048
     Dates: start: 20130319, end: 20130319
  2. DELORAZEPAM [Suspect]
     Indication: PRODUCT USED FOR UNKNOWN INDICATION
     Route: 048
     Dates: start: 20130319, end: 20130319
  3. CARDIOASPIRIN [Concomitant]
     Indication: THROMBOSIS
     Route: 048
     Dates: start: 20120101, end: 20130319
  4. TRITTICO [Concomitant]
     Indication: DEPRESSION
     Route: 048
     Dates: start: 20120101, end: 20130319
  5. DOSTINEX [Concomitant]
     Indication: PRODUCT USED FOR UNKNOWN INDICATION
     Route: 048
     Dates: start: 20120101, end: 20130319

REACTIONS (3)
  - Sopor [Recovering/Resolving]
  - Self injurious behaviour [Recovering/Resolving]
  - Intentional overdose [Recovering/Resolving]
